FAERS Safety Report 6075492-5 (Version None)
Quarter: 2009Q1

REPORT INFORMATION
  Report Type: 
  Country: None (occurrence: None)
  Receive Date: 20090212
  Receipt Date: 20090204
  Transmission Date: 20090719
  Serious: Yes (Hospitalization)
  Sender: FDA-Public Use
  Company Number: B0558729A

PATIENT
  Age: 64 Year
  Sex: Female

DRUGS (4)
  1. AUGMENTIN '125' [Suspect]
     Indication: MASTITIS
     Route: 042
     Dates: start: 20081003, end: 20081021
  2. NOLOTIL [Suspect]
     Indication: MASTITIS
     Route: 048
     Dates: start: 20081003, end: 20081021
  3. PARACETAMOL [Concomitant]
     Indication: MASTITIS
     Route: 048
     Dates: start: 20081003
  4. OMEPRAZOLE [Concomitant]
     Indication: PROPHYLAXIS
     Route: 048
     Dates: start: 20081003

REACTIONS (1)
  - THROMBOCYTOPENIC PURPURA [None]
